FAERS Safety Report 7218094-7 (Version None)
Quarter: 2010Q4

REPORT INFORMATION
  Report Type: 
  Country: None (occurrence: None)
  Receive Date: 20101227
  Receipt Date: 20101217
  Transmission Date: 20110411
  Serious: Yes (Hospitalization, Other)
  Sender: FDA-Public Use
  Company Number: 2010SP063919

PATIENT
  Age: 41 Year
  Sex: Male
  Weight: 107 kg

DRUGS (13)
  1. REMERGIL (MIRTAZAPINE) [Suspect]
     Indication: PAIN
     Dosage: 30 MG HS, 15 MG HS, 15 MG HS
     Dates: start: 20100601, end: 20100902
  2. REMERGIL (MIRTAZAPINE) [Suspect]
     Indication: SLEEP DISORDER
     Dosage: 30 MG HS, 15 MG HS, 15 MG HS
     Dates: start: 20100601, end: 20100902
  3. REMERGIL (MIRTAZAPINE) [Suspect]
     Indication: PAIN
     Dosage: 30 MG HS, 15 MG HS, 15 MG HS
     Dates: start: 20100903, end: 20100907
  4. REMERGIL (MIRTAZAPINE) [Suspect]
     Indication: SLEEP DISORDER
     Dosage: 30 MG HS, 15 MG HS, 15 MG HS
     Dates: start: 20100903, end: 20100907
  5. REMERGIL (MIRTAZAPINE) [Suspect]
     Indication: PAIN
     Dosage: 30 MG HS, 15 MG HS, 15 MG HS
     Dates: start: 20101117, end: 20101203
  6. REMERGIL (MIRTAZAPINE) [Suspect]
     Indication: SLEEP DISORDER
     Dosage: 30 MG HS, 15 MG HS, 15 MG HS
     Dates: start: 20101117, end: 20101203
  7. RAMIPRIL [Concomitant]
  8. PANTOPRAZOLE [Concomitant]
  9. ALPHA LIPOLIC ACID [Concomitant]
  10. ACETYLCYSTEINE [Concomitant]
  11. PREGABALIN [Concomitant]
  12. TRIMIPRAMINE MALEATE [Concomitant]
  13. DOXEPIN HCL [Concomitant]

REACTIONS (3)
  - ARTHRALGIA [None]
  - MYALGIA [None]
  - RHABDOMYOLYSIS [None]
